FAERS Safety Report 5888591-5 (Version None)
Quarter: 2008Q3

REPORT INFORMATION
  Report Type: 
  Country: None (occurrence: None)
  Receive Date: 20080918
  Receipt Date: 20080912
  Transmission Date: 20090109
  Serious: Yes (Hospitalization, Other)
  Sender: FDA-Public Use
  Company Number: US-BAXTER-2006BH013421

PATIENT
  Age: 29 Day
  Sex: Male
  Weight: 1 kg

DRUGS (3)
  1. HEPARIN SODIUM INJECTION [Suspect]
     Indication: INTRAVENOUS CATHETER MANAGEMENT
     Route: 042
     Dates: start: 20060916, end: 20060916
  2. HEPARIN SODIUM INJECTION [Suspect]
     Route: 042
     Dates: start: 20060916, end: 20060916
  3. HEPARIN SODIUM INJECTION [Suspect]
     Route: 042
     Dates: start: 20060916, end: 20060916

REACTIONS (5)
  - ACTIVATED PARTIAL THROMBOPLASTIN TIME PROLONGED [None]
  - INTERNATIONAL NORMALISED RATIO INCREASED [None]
  - MEDICATION ERROR [None]
  - NECROTISING COLITIS [None]
  - OVERDOSE [None]
